FAERS Safety Report 21975404 (Version 3)
Quarter: 2023Q1

REPORT INFORMATION
  Report Type: Spontaneous
  Country: US (occurrence: US)
  Receive Date: 20230210
  Receipt Date: 20230217
  Transmission Date: 20230417
  Serious: No
  Sender: FDA-Public Use
  Company Number: US-BIOGEN-2023BI01186197

PATIENT
  Sex: Female

DRUGS (13)
  1. VUMERITY [Suspect]
     Active Substance: DIROXIMEL FUMARATE
     Indication: Multiple sclerosis
     Route: 050
     Dates: start: 20220314
  2. VUMERITY [Suspect]
     Active Substance: DIROXIMEL FUMARATE
     Dosage: TAKE 2 CAPSULES (462MG) BY MOUTH TWICE DAILY.
     Route: 050
  3. CLONAZEPAM [Concomitant]
     Active Substance: CLONAZEPAM
     Route: 050
  4. CYTOMEL [Concomitant]
     Active Substance: LIOTHYRONINE SODIUM
     Route: 050
  5. ESTRADIOL [Concomitant]
     Active Substance: ESTRADIOL
     Route: 050
  6. PROTONIX [Concomitant]
     Active Substance: PANTOPRAZOLE SODIUM
     Route: 050
  7. SYNTHROID [Concomitant]
     Active Substance: LEVOTHYROXINE SODIUM
     Route: 050
  8. LASIX [Concomitant]
     Active Substance: FUROSEMIDE
     Route: 050
  9. TELMISARTAN [Concomitant]
     Active Substance: TELMISARTAN
     Route: 050
  10. CARAFATE [Concomitant]
     Active Substance: SUCRALFATE
     Route: 050
  11. CEQUA [Concomitant]
     Active Substance: CYCLOSPORINE
     Route: 050
  12. IBUPROFEN [Concomitant]
     Active Substance: IBUPROFEN
     Route: 050
  13. DICYCLOMINE HYDROCHLORIDE [Concomitant]
     Active Substance: DICYCLOMINE HYDROCHLORIDE
     Route: 050

REACTIONS (3)
  - Prescribed underdose [Unknown]
  - Intentional product misuse [Unknown]
  - Gastrointestinal viral infection [Not Recovered/Not Resolved]

NARRATIVE: CASE EVENT DATE: 20230101
